FAERS Safety Report 19072756 (Version 1)
Quarter: 2021Q1

REPORT INFORMATION
  Report Type: Spontaneous
  Country: CN (occurrence: CN)
  Receive Date: 20210330
  Receipt Date: 20210330
  Transmission Date: 20210420
  Serious: Yes (Other)
  Sender: FDA-Public Use
  Company Number: CN-BAYER-2021-113462

PATIENT
  Age: 66 Year
  Sex: Female
  Weight: 66 kg

DRUGS (2)
  1. GLIQUIDONE [Concomitant]
     Active Substance: GLIQUIDONE
     Indication: DIABETES MELLITUS
     Dosage: 30 MG, BID
     Route: 048
     Dates: start: 20191113, end: 20210211
  2. GLUCOBAY [Suspect]
     Active Substance: ACARBOSE
     Indication: DIABETES MELLITUS
     Dosage: 50 MG, TID
     Route: 048
     Dates: start: 20210202, end: 20210204

REACTIONS (2)
  - Abdominal tenderness [Recovered/Resolved]
  - Convulsions local [Recovered/Resolved]

NARRATIVE: CASE EVENT DATE: 20210204
